FAERS Safety Report 5449469-4 (Version None)
Quarter: 2007Q3

REPORT INFORMATION
  Report Type: 
  Country: None (occurrence: None)
  Receive Date: 20070911
  Receipt Date: 20070830
  Transmission Date: 20080115
  Serious: Yes (Other)
  Sender: FDA-Public Use
  Company Number: US-PFIZER INC-2007073698

PATIENT
  Sex: Female
  Weight: 74.8 kg

DRUGS (3)
  1. CHANTIX [Suspect]
     Indication: SMOKING CESSATION THERAPY
     Dates: start: 20070728, end: 20070819
  2. SYNTHROID [Concomitant]
  3. LEXAPRO [Concomitant]

REACTIONS (14)
  - BLOOD PRESSURE INCREASED [None]
  - FACIAL PALSY [None]
  - FEELING JITTERY [None]
  - FLATULENCE [None]
  - HEADACHE [None]
  - HEART RATE INCREASED [None]
  - HYPOAESTHESIA ORAL [None]
  - JOINT SPRAIN [None]
  - MALAISE [None]
  - MONOPLEGIA [None]
  - MUSCLE TWITCHING [None]
  - MUSCULAR WEAKNESS [None]
  - PALPITATIONS [None]
  - SLEEP DISORDER [None]
